FAERS Safety Report 4513856-9 (Version None)
Quarter: 2004Q4

REPORT INFORMATION
  Report Type: 
  Country: None (occurrence: None)
  Receive Date: 20041130
  Receipt Date: 20040915
  Transmission Date: 20050328
  Serious: No
  Sender: FDA-Public Use
  Company Number: US-GLAXOSMITHKLINE-A0525832A

PATIENT
  Sex: Female

DRUGS (6)
  1. WELLBUTRIN XL [Suspect]
     Indication: ILL-DEFINED DISORDER
     Dosage: 150MG PER DAY
     Route: 048
  2. TOPAMAX [Concomitant]
  3. CLARINEX [Concomitant]
  4. FLONASE [Concomitant]
  5. ASTELIN [Concomitant]
  6. BIRTH CONTROL PILLS [Concomitant]

REACTIONS (6)
  - DIZZINESS [None]
  - DRY MOUTH [None]
  - NAUSEA [None]
  - POLLAKIURIA [None]
  - TINNITUS [None]
  - VERTIGO [None]
